FAERS Safety Report 8281975-X (Version None)
Quarter: 2012Q2

REPORT INFORMATION
  Report Type: 
  Country: None (occurrence: None)
  Receive Date: 20120410
  Receipt Date: 20120328
  Transmission Date: 20120825
  Serious: Yes (Other)
  Sender: FDA-Public Use
  Company Number: NSR_00523_2012

PATIENT
  Age: 72 Year
  Sex: Female

DRUGS (6)
  1. ALLOPURINOL [Suspect]
     Indication: HYPERURICAEMIA
     Dosage: (DF)
  2. CAPTOPRIL [Concomitant]
  3. DIGOXIN [Concomitant]
  4. FUROSEMIDE [Concomitant]
  5. ACENOCUMAROL [Concomitant]
  6. IRON SUPPLEMENT WITH VIT C + HERBS [Concomitant]

REACTIONS (10)
  - ANAEMIA [None]
  - RASH MACULO-PAPULAR [None]
  - PRURITUS [None]
  - RENAL FAILURE [None]
  - TOXICITY TO VARIOUS AGENTS [None]
  - THROMBOCYTOPENIA [None]
  - LEUKOCYTOCLASTIC VASCULITIS [None]
  - BICYTOPENIA [None]
  - RASH ERYTHEMATOUS [None]
  - LEUKOPENIA [None]
